FAERS Safety Report 6861459-3 (Version None)
Quarter: 2010Q3

REPORT INFORMATION
  Report Type: 
  Country: None (occurrence: None)
  Receive Date: 20100715
  Receipt Date: 20100630
  Transmission Date: 20110219
  Serious: Yes (Hospitalization)
  Sender: FDA-Public Use
  Company Number: 2010BI022654

PATIENT
  Age: 68 Year
  Sex: Male

DRUGS (19)
  1. ZEVALIN [Suspect]
     Indication: B-CELL SMALL LYMPHOCYTIC LYMPHOMA STAGE IV
     Dosage: 932 MBQ;QM;IV
     Route: 042
     Dates: start: 20100119, end: 20100126
  2. RITUXAN (CON.) [Concomitant]
  3. LOXONIN (CON.) [Concomitant]
  4. POLARAMINE (CON.) [Concomitant]
  5. MYSLEE (CON.) [Concomitant]
  6. VFEND (CON.) [Concomitant]
  7. OLMETEC (CON.) [Concomitant]
  8. MAGNESIUM OXIDE (CON.) [Concomitant]
  9. FLUITRAN (CON.) [Concomitant]
  10. ZYLORIC (CON.) [Concomitant]
  11. GASTER D (CON.) [Concomitant]
  12. XYLOCAINE POLYAMP (CON.) [Concomitant]
  13. CONTOMIN (CON.) [Concomitant]
  14. RITUXIMAB (PREV.) [Concomitant]
  15. CYCLOPHOSPHAMIDE (PREV.) [Concomitant]
  16. CYTARABINE OCPHOSPHATE (PREV.) [Concomitant]
  17. DEXAMETHASONE (PREV.) [Concomitant]
  18. ETOPOSIDE (PREV.) [Concomitant]
  19. FLUDEOXYGLUCOSE (PREV.) [Concomitant]

REACTIONS (5)
  - ANAEMIA [None]
  - CONDITION AGGRAVATED [None]
  - NEUTROPHIL COUNT DECREASED [None]
  - PLATELET COUNT DECREASED [None]
  - SINUSITIS [None]
